FAERS Safety Report 5532661-8 (Version None)
Quarter: 2007Q4

REPORT INFORMATION
  Report Type: 
  Country: None (occurrence: None)
  Receive Date: 20071120
  Receipt Date: 20070730
  Transmission Date: 20080405
  Serious: No
  Sender: FDA-Public Use
  Company Number: WAES 0708USA00052

PATIENT
  Age: 59 Year
  Sex: Female
  Weight: 77.5651 kg

DRUGS (2)
  1. JANUVIA [Suspect]
     Indication: TYPE 2 DIABETES MELLITUS
     Dosage: 100 MG/DAILY/PO
     Route: 048
     Dates: start: 20070719, end: 20070814
  2. AMARYL [Concomitant]

REACTIONS (1)
  - DRUG INEFFECTIVE [None]
